FAERS Safety Report 7573626-4 (Version None)
Quarter: 2011Q2

REPORT INFORMATION
  Report Type: 
  Country: None (occurrence: None)
  Receive Date: 20110627
  Receipt Date: 20110617
  Transmission Date: 20111010
  Serious: Yes (Hospitalization)
  Sender: FDA-Public Use
  Company Number: JP-ROCHE-728394

PATIENT
  Sex: Male
  Weight: 49 kg

DRUGS (36)
  1. XELODA [Suspect]
     Indication: COLON CANCER METASTATIC
     Dosage: DRUG NAME:XELODA 300(CAPECITABINE)
     Route: 048
     Dates: start: 20100609, end: 20100618
  2. XELODA [Suspect]
     Route: 048
     Dates: start: 20100816, end: 20100830
  3. XELODA [Suspect]
     Route: 048
     Dates: start: 20101220, end: 20110103
  4. AVASTIN [Suspect]
     Route: 041
     Dates: start: 20100816, end: 20100816
  5. AVASTIN [Suspect]
     Route: 041
     Dates: start: 20101220, end: 20101220
  6. AVASTIN [Suspect]
     Route: 041
     Dates: start: 20110228, end: 20110228
  7. OXALIPLATIN [Suspect]
     Route: 042
     Dates: start: 20110207, end: 20110207
  8. AVASTIN [Suspect]
     Indication: COLON CANCER METASTATIC
     Route: 041
     Dates: start: 20100609, end: 20100609
  9. OXALIPLATIN [Suspect]
     Route: 042
     Dates: start: 20100927, end: 20100927
  10. XELODA [Suspect]
     Route: 048
     Dates: start: 20110228, end: 20110314
  11. ALLOID G [Concomitant]
     Route: 048
     Dates: start: 20100618
  12. XELODA [Suspect]
     Route: 048
     Dates: start: 20101018, end: 20101101
  13. XELODA [Suspect]
     Route: 048
     Dates: start: 20110207, end: 20110221
  14. AVASTIN [Suspect]
     Route: 041
     Dates: start: 20100705, end: 20100705
  15. AVASTIN [Suspect]
     Route: 041
     Dates: start: 20101129, end: 20101129
  16. AVASTIN [Suspect]
     Route: 041
     Dates: start: 20110117, end: 20110117
  17. AVASTIN [Suspect]
     Route: 041
     Dates: start: 20110207, end: 20110207
  18. OXALIPLATIN [Suspect]
     Route: 042
     Dates: start: 20110228, end: 20110228
  19. DEXAMETHASONE SODIUM PHOSPHATE [Suspect]
     Indication: PROPHYLAXIS
     Dosage: ROUTE: INTRAVENOUS (NOT OTHERWISE SPECIFIED)
     Route: 041
     Dates: start: 20100607
  20. XELODA [Suspect]
     Route: 048
     Dates: start: 20101129, end: 20101213
  21. OXALIPLATIN [Suspect]
     Route: 042
     Dates: start: 20100816, end: 20100816
  22. XELODA [Suspect]
     Route: 048
     Dates: start: 20110117, end: 20110131
  23. AVASTIN [Suspect]
     Route: 041
     Dates: start: 20100927, end: 20100927
  24. OXALIPLATIN [Suspect]
     Indication: COLON CANCER METASTATIC
     Route: 042
     Dates: start: 20100609, end: 20100609
  25. OXALIPLATIN [Suspect]
     Route: 042
     Dates: start: 20100705, end: 20100705
  26. OXALIPLATIN [Suspect]
     Route: 042
     Dates: start: 20101129, end: 20101129
  27. OXALIPLATIN [Suspect]
     Route: 042
     Dates: start: 20101220, end: 20101220
  28. OXALIPLATIN [Suspect]
     Route: 042
     Dates: start: 20110117, end: 20110117
  29. DEXAMETHASONE [Suspect]
     Indication: PROPHYLAXIS
     Route: 048
     Dates: start: 20100607
  30. XELODA [Suspect]
     Route: 048
     Dates: start: 20100705, end: 20100719
  31. XELODA [Suspect]
     Route: 048
     Dates: start: 20100927, end: 20101011
  32. AVASTIN [Suspect]
     Route: 041
     Dates: start: 20101018, end: 20101018
  33. OXALIPLATIN [Suspect]
     Route: 042
     Dates: start: 20101018, end: 20101018
  34. FAMOTIDINE [Concomitant]
     Dosage: DOSE FORM: PERORAL AGENT
     Route: 048
     Dates: start: 20100630
  35. FERROUS SULFATE TAB [Concomitant]
     Route: 048
     Dates: start: 20100622
  36. OMEPRAZOLE [Concomitant]
     Dosage: ROUTE: INTRAVENOUS (NOT OTHERWISE SPECIFIED)
     Route: 042
     Dates: start: 20100618, end: 20100625

REACTIONS (3)
  - GASTRIC ULCER [None]
  - HYPERURICAEMIA [None]
  - GASTRIC ULCER HAEMORRHAGE [None]
